FAERS Safety Report 9093923 (Version 1)
Quarter: 2013Q1

REPORT INFORMATION
  Report Type: Spontaneous
  Country: US (occurrence: None)
  Receive Date: 20130122
  Receipt Date: 20130122
  Transmission Date: 20140127
  Serious: Yes (Death)
  Sender: FDA-Public Use
  Company Number: FK201300044

PATIENT
  Age: 50 Year
  Sex: 0

DRUGS (1)
  1. BUPIVACAINE [Suspect]
     Indication: PRODUCT USED FOR UNKNOWN INDICATION
     Dosage: (30 ML)

REACTIONS (14)
  - Toxicity to various agents [None]
  - Cardiac arrest [None]
  - Extravasation [None]
  - Blood pH decreased [None]
  - PCO2 increased [None]
  - PO2 decreased [None]
  - Blood bicarbonate decreased [None]
  - Aspartate aminotransferase increased [None]
  - Alanine aminotransferase increased [None]
  - Haemoglobin decreased [None]
  - Haematocrit decreased [None]
  - Blood calcium decreased [None]
  - Calcium ionised decreased [None]
  - Blood albumin decreased [None]
